FAERS Safety Report 5230844-8 (Version None)
Quarter: 2007Q1

REPORT INFORMATION
  Report Type: 
  Country: None (occurrence: None)
  Receive Date: 20070202
  Receipt Date: 20070122
  Transmission Date: 20070707
  Serious: No
  Sender: FDA-Public Use
  Company Number: 2006-151074-NL

PATIENT
  Age: 42 Year
  Sex: Female

DRUGS (1)
  1. NUVARING [Suspect]
     Indication: CONTRACEPTION
     Dosage: DF
     Dates: start: 20040901, end: 20061101

REACTIONS (3)
  - CERVICAL DYSPLASIA [None]
  - ECTROPION OF CERVIX [None]
  - METAPLASIA [None]
